FAERS Safety Report 5260023-X (Version None)
Quarter: 2007Q1

REPORT INFORMATION
  Report Type: 
  Country: None (occurrence: None)
  Receive Date: 20070309
  Receipt Date: 20060208
  Transmission Date: 20070707
  Serious: No
  Sender: FDA-Public Use
  Company Number: US-GLAXOSMITHKLINE-A0592569A

PATIENT
  Age: 37 Year
  Sex: Female

DRUGS (4)
  1. NICORETTE (MINT) [Suspect]
     Dates: start: 20060202, end: 20060206
  2. LORTAB [Concomitant]
  3. PROZAC [Concomitant]
  4. THYROID TAB [Concomitant]

REACTIONS (1)
  - ABDOMINAL PAIN UPPER [None]
